FAERS Safety Report 8606096-5 (Version None)
Quarter: 2012Q3

REPORT INFORMATION
  Report Type: 
  Country: None (occurrence: None)
  Receive Date: 20120820
  Receipt Date: 20120808
  Transmission Date: 20120928
  Serious: Yes (Death)
  Sender: FDA-Public Use
  Company Number: JP-ROCHE-1100735

PATIENT
  Age: 43 Year
  Sex: Female

DRUGS (8)
  1. FLUOROURACIL [Concomitant]
     Route: 041
  2. LEVOLEUCOVORIN CALCIUM [Concomitant]
     Indication: RECTAL CANCER
     Route: 041
  3. FLUOROURACIL [Concomitant]
     Dosage: DOSAGE IS UNCERTAIN.
     Route: 040
  4. FLUOROURACIL [Concomitant]
     Indication: RECTAL CANCER
     Route: 040
  5. FLUOROURACIL [Concomitant]
     Dosage: DOSAGE IS UNCERTAIN.
     Route: 041
  6. LEVOLEUCOVORIN CALCIUM [Concomitant]
     Dosage: DOSAGE IS UNCERTAIN.
     Route: 041
  7. AVASTIN [Suspect]
     Indication: RECTAL CANCER
     Route: 041
  8. OXALIPLATIN [Concomitant]
     Indication: RECTAL CANCER
     Route: 041

REACTIONS (3)
  - RECTAL CANCER [None]
  - RASH [None]
  - WHITE BLOOD CELL COUNT DECREASED [None]
